FAERS Safety Report 17184105 (Version 1)
Quarter: 2019Q4

REPORT INFORMATION
  Report Type: Spontaneous
  Country: US (occurrence: US)
  Receive Date: 20191219
  Receipt Date: 20191219
  Transmission Date: 20200122
  Serious: Yes (Hospitalization)
  Sender: FDA-Public Use
  Company Number: None

PATIENT
  Sex: Female

DRUGS (4)
  1. VITAMIN C, VITAMIN D, CENTRUM, ATENOLOL, FUROSEMIDE, AMOXICILLIN [Concomitant]
  2. MYCOPHENOLATE [Suspect]
     Active Substance: MYCOPHENOLIC ACID
     Indication: AUTOIMMUNE HEPATITIS
     Route: 048
     Dates: start: 20171028
  3. ESOMEPRA, PROBENECID, LIDOCAINE, XIFAXAN, SOTALOL, LACTULOSE [Concomitant]
  4. SPIRONOLACTONE. [Concomitant]
     Active Substance: SPIRONOLACTONE

REACTIONS (2)
  - Fungal infection [None]
  - Stomatitis [None]
